FAERS Safety Report 9987375 (Version 1)
Quarter: 2014Q1

REPORT INFORMATION
  Report Type: Spontaneous
  Country: US (occurrence: US)
  Receive Date: 20140307
  Receipt Date: 20140307
  Transmission Date: 20141002
  Serious: No
  Sender: FDA-Public Use
  Company Number: US-AMGEN-USASP2014011193

PATIENT
  Age: 58 Year
  Sex: Female
  Weight: 96.6 kg

DRUGS (29)
  1. ENBREL [Suspect]
     Indication: RHEUMATOID ARTHRITIS
     Dosage: 50 MG, QWK
     Route: 058
     Dates: start: 20140210
  2. ALBUTEROL                          /00139501/ [Concomitant]
     Dosage: UNK
  3. ATORVASTATIN [Concomitant]
     Dosage: UNK
  4. ATROVENT [Concomitant]
     Dosage: UNK
  5. BYDUREON [Concomitant]
     Dosage: UNK
  6. CITALOPRAM [Concomitant]
     Dosage: UNK
  7. COREG [Concomitant]
     Dosage: UNK
  8. COZAAR [Concomitant]
     Dosage: UNK
  9. DUONEB [Concomitant]
     Dosage: UNK
  10. ECOTRIN [Concomitant]
     Dosage: UNK
  11. FOLIC ACID [Concomitant]
     Dosage: UNK
  12. GABAPENTIN [Concomitant]
     Dosage: UNK
  13. GLUMETZA [Concomitant]
     Dosage: UNK
  14. INVOKANA [Concomitant]
     Dosage: UNK
  15. KLOR CON [Concomitant]
     Dosage: UNK
  16. LANTUS [Concomitant]
     Dosage: UNK
  17. METHOTREXATE [Concomitant]
     Dosage: UNK
  18. NEXIUM                             /01479302/ [Concomitant]
     Dosage: UNK
  19. NITRO DUR [Concomitant]
     Dosage: UNK
  20. NITROGLYCERIN [Concomitant]
     Dosage: UNK
  21. PIOGLITAZONE [Concomitant]
     Dosage: UNK
  22. NISTATIN [Concomitant]
     Dosage: UNK
  23. TRIAMCINOLONE [Concomitant]
     Dosage: UNK
  24. SPIRIVA [Concomitant]
     Dosage: UNK
  25. SYMBICORT [Concomitant]
     Dosage: UNK
  26. TIZANIDINE [Concomitant]
     Dosage: UNK
  27. TRAZODONE [Concomitant]
     Dosage: UNK
  28. TRICOR                             /00090101/ [Concomitant]
     Dosage: UNK
  29. VITAMIN D                          /00107901/ [Concomitant]
     Dosage: UNK

REACTIONS (2)
  - Erythema [Not Recovered/Not Resolved]
  - Impaired healing [Not Recovered/Not Resolved]
